FAERS Safety Report 9345671 (Version 1)
Quarter: 2013Q2

REPORT INFORMATION
  Report Type: Report from Study
  Country: CA (occurrence: CA)
  Receive Date: 20130613
  Receipt Date: 20130613
  Transmission Date: 20140414
  Serious: Yes (Hospitalization)
  Sender: FDA-Public Use
  Company Number: PHHY2013CA059891

PATIENT
  Sex: Male

DRUGS (2)
  1. CLOZARIL [Suspect]
     Indication: SCHIZOPHRENIA
     Dosage: UNK UKN, UNK
     Dates: start: 19910805
  2. CLOZARIL [Suspect]
     Dosage: LOW DOSE

REACTIONS (5)
  - Dehydration [Unknown]
  - Disorientation [Unknown]
  - Antipsychotic drug level increased [Unknown]
  - Hypotension [Unknown]
  - Infection [Recovering/Resolving]
